FAERS Safety Report 5551254-X (Version None)
Quarter: 2007Q4

REPORT INFORMATION
  Report Type: 
  Country: None (occurrence: None)
  Receive Date: 20071210
  Receipt Date: 20071114
  Transmission Date: 20080405
  Serious: Yes (Hospitalization)
  Sender: FDA-Public Use
  Company Number: 2007JP005224

PATIENT
  Age: 44 Year
  Sex: Male

DRUGS (2)
  1. PROGRAF [Suspect]
     Indication: RENAL TRANSPLANT
  2. MYCOPHENOLATE MOFETIL [Suspect]

REACTIONS (2)
  - CYTOMEGALOVIRUS CHORIORETINITIS [None]
  - RENAL IMPAIRMENT [None]
